FAERS Safety Report 6492398-8 (Version None)
Quarter: 2009Q4

REPORT INFORMATION
  Report Type: 
  Country: None (occurrence: None)
  Receive Date: 20091208
  Receipt Date: 20091127
  Transmission Date: 20100525
  Serious: Yes (Other)
  Sender: FDA-Public Use
  Company Number: 2009AP004850

PATIENT
  Age: 81 Year
  Sex: Male

DRUGS (5)
  1. AMLODIPINE BESYLATE [Suspect]
     Dates: start: 20060101, end: 20060901
  2. RAMIPRIL [Suspect]
     Indication: PROPHYLAXIS URINARY TRACT INFECTION
     Dates: start: 20060101, end: 20060901
  3. ALFACALCIDOL (ALFACALCIDOL) [Suspect]
     Indication: PROPHYLAXIS URINARY TRACT INFECTION
     Dates: start: 20060101, end: 20060901
  4. NITROFURANTOIN [Suspect]
     Indication: PROPHYLAXIS URINARY TRACT INFECTION
     Dates: start: 20060101, end: 20060901
  5. ACETAMINOPHEN [Suspect]
     Indication: PROPHYLAXIS URINARY TRACT INFECTION
     Dates: start: 20060101, end: 20060901

REACTIONS (5)
  - CATARACT [None]
  - INTRACRANIAL PRESSURE INCREASED [None]
  - OPTIC DISC DISORDER [None]
  - THROMBOCYTOPENIA [None]
  - VISUAL ACUITY REDUCED [None]
